FAERS Safety Report 4467674-0 (Version None)
Quarter: 2004Q4

REPORT INFORMATION
  Report Type: 
  Country: None (occurrence: None)
  Receive Date: 20041005
  Receipt Date: 20040921
  Transmission Date: 20050328
  Serious: Yes (Other)
  Sender: FDA-Public Use
  Company Number: 2004068728

PATIENT
  Age: 16 Month
  Sex: Male
  Weight: 11.3399 kg

DRUGS (1)
  1. INFANT'S PEDIACARE DECONGESTANT AND COUGH DROPS (DEXTROMETHORPHAN, PSE [Suspect]
     Indication: NASOPHARYNGITIS
     Dosage: 0.4 ML ONCE, ORAL
     Route: 048
     Dates: start: 20040708, end: 20040708

REACTIONS (1)
  - VOMITING [None]
